FAERS Safety Report 16977806 (Version 3)
Quarter: 2022Q3

REPORT INFORMATION
  Report Type: Other
  Country: CA (occurrence: None)
  Receive Date: 20191031
  Receipt Date: 20220930
  Transmission Date: 20221027
  Serious: Yes (Disabling)
  Sender: FDA-Public Use
  Company Number: CA-ROCHE-2364656

PATIENT
  Age: 50 Year
  Sex: Female
  Weight: 93 kg

DRUGS (11)
  1. OCREVUS [Suspect]
     Active Substance: OCRELIZUMAB
     Indication: Relapsing-remitting multiple sclerosis
     Dosage: 300 MG AT DAY 0 AND 14, THEN 600 MG EVERY 6 MONTH?17/JUL/2019, RECEIVED SAME SUBSEQUENT DOSE
     Route: 042
     Dates: start: 20190717
  2. OCREVUS [Suspect]
     Active Substance: OCRELIZUMAB
     Indication: Multiple sclerosis
  3. CITALOPRAM [Concomitant]
     Active Substance: CITALOPRAM HYDROBROMIDE
  4. RIZATRIPTAN [Concomitant]
     Active Substance: RIZATRIPTAN
     Dosage: TAKE 1 TABLET IMMEDIATELY AT THE START OF THE MIGRAINE AND REPEAT AFTER 2 HOURS IF ONLY PARTIALLY AL
  5. ALMAGEL (CANADA) [Concomitant]
     Dosage: TAKE 10 TO 20 ML?EVERY 4 HOURS IF?REQUIRED (MAX:?[ILLEGIBLE] ML IN 24?HOURS) * EQUIVALENT:?MAALOX
     Route: 048
  6. RITALIN [Concomitant]
     Active Substance: METHYLPHENIDATE HYDROCHLORIDE
  7. VALACYCLOVIR [Concomitant]
     Active Substance: VALACYCLOVIR HYDROCHLORIDE
  8. VALACYCLOVIR [Concomitant]
     Active Substance: VALACYCLOVIR HYDROCHLORIDE
  9. MOMETASONE [Concomitant]
     Active Substance: MOMETASONE
     Dosage: TAKE 2 PUFFS 1 X PER?DAY IN EACH NOSTRIL
  10. LANSOPRAZOLE [Concomitant]
     Active Substance: LANSOPRAZOLE
  11. CELECOXIB [Concomitant]
     Active Substance: CELECOXIB

REACTIONS (9)
  - Diarrhoea [Recovered/Resolved]
  - Infusion related reaction [Recovered/Resolved]
  - Vomiting [Unknown]
  - Infusion related reaction [Recovered/Resolved]
  - Headache [Recovered/Resolved]
  - Hypertension [Recovered/Resolved]
  - Fatigue [Recovered/Resolved]
  - Asthenia [Unknown]
  - Fatigue [Unknown]

NARRATIVE: CASE EVENT DATE: 20190717
